FAERS Safety Report 4338209-8 (Version None)
Quarter: 2004Q2

REPORT INFORMATION
  Report Type: 
  Country: None (occurrence: None)
  Receive Date: 20040407
  Receipt Date: 20040324
  Transmission Date: 20050107
  Serious: Yes (Death, Other)
  Sender: FDA-Public Use
  Company Number: DE-JNJFOC-20040305263

PATIENT
  Age: 42 Year
  Sex: Male

DRUGS (5)
  1. OKT3 (MUROMONAB-CD3) UNSPECIFIED [Suspect]
     Indication: RENAL AND PANCREAS TRANSPLANT REJECTION
     Dosage: 5 MG, 10 IN 10 DAY, UNKNOWN
     Dates: start: 19910101, end: 19910101
  2. ANTI-T LYMPHOCYTE GLOBULIN (ATG)  (ANTILYMPHOCYTE IMMUNOGLOBULIN (HORS [Concomitant]
  3. PREDNISOLONE [Concomitant]
  4. CYCLOSPORINE [Concomitant]
  5. AZATHIOPRINE [Concomitant]

REACTIONS (17)
  - ANGINA PECTORIS [None]
  - AORTIC VALVE DISEASE [None]
  - ARTHRALGIA [None]
  - BLOOD AMYLASE INCREASED [None]
  - COMPLICATIONS OF TRANSPLANT SURGERY [None]
  - FIBROSIS [None]
  - LIPASE INCREASED [None]
  - METASTASES TO BONE [None]
  - METASTASES TO LIVER [None]
  - METASTASES TO LUNG [None]
  - METASTASES TO LYMPH NODES [None]
  - MITRAL VALVE DISEASE [None]
  - MYOCARDIAL ISCHAEMIA [None]
  - POST PROCEDURAL COMPLICATION [None]
  - RECTAL CANCER METASTATIC [None]
  - RENAL AND PANCREAS TRANSPLANT REJECTION [None]
  - TUMOUR NECROSIS [None]
